FAERS Safety Report 8312702 (Version 3)
Quarter: 2012Q4

REPORT INFORMATION
  Report Type: Report from Study
  Country: ES (occurrence: ES)
  Receive Date: 20111227
  Receipt Date: 20121130
  Transmission Date: 20130627
  Serious: Yes (Hospitalization, Other)
  Sender: FDA-Public Use
  Company Number: ES-ACTELION-A-CH2011-57647

PATIENT
  Age: 7 Year
  Sex: Male
  Weight: 13.9 kg

DRUGS (2)
  1. ZAVESCA [Suspect]
     Indication: NIEMANN-PICK DISEASE
     Dosage: 100 mg, bid
     Route: 048
     Dates: start: 20090119
  2. PHENOBARBITAL [Concomitant]
     Dosage: UNK
     Dates: start: 201101

REACTIONS (7)
  - Growth retardation [Unknown]
  - Convulsion [Not Recovered/Not Resolved]
  - Concomitant disease aggravated [Not Recovered/Not Resolved]
  - Weight decreased [Recovered/Resolved]
  - Constipation [Recovered/Resolved]
  - Fluid intake reduced [Recovered/Resolved]
  - Transaminases increased [Unknown]
